FAERS Safety Report 7517030-3 (Version None)
Quarter: 2011Q2

REPORT INFORMATION
  Report Type: 
  Country: None (occurrence: None)
  Receive Date: 20110503
  Receipt Date: 20110318
  Transmission Date: 20111010
  Serious: Yes (Death)
  Sender: FDA-Public Use
  Company Number: GC11-010

PATIENT
  Age: 65 Year
  Sex: Male

DRUGS (4)
  1. AMIODARONE HCL [Suspect]
     Indication: VENTRICULAR FIBRILLATION
     Dosage: 150 MG/3 ML; 1 X IV, 1 DOSE
     Route: 042
  2. DEXTROSE [Concomitant]
  3. EPINEPHRINE [Concomitant]
  4. ATROPINE [Concomitant]

REACTIONS (2)
  - CARDIAC ARREST [None]
  - HYPOGLYCAEMIA [None]
